FAERS Safety Report 6375631-2 (Version None)
Quarter: 2009Q3

REPORT INFORMATION
  Report Type: 
  Country: None (occurrence: None)
  Receive Date: 20090917
  Receipt Date: 20090917
  Transmission Date: 20100115
  Serious: Yes (Hospitalization)
  Sender: FDA-Public Use
  Company Number: None

PATIENT
  Age: 77 Year
  Sex: Male
  Weight: 74.3899 kg

DRUGS (3)
  1. CARVEDILOL [Suspect]
     Indication: HYPERTENSION
     Dosage: 25 MG TWICE A DAY PO
     Route: 048
     Dates: start: 20090601, end: 20090630
  2. LISINOPRIL [Suspect]
     Indication: DIABETES MELLITUS
     Dosage: 20 MG TWICE A DAY PO
     Route: 048
  3. LISINOPRIL [Suspect]
     Indication: HYPERTENSION
     Dosage: 20 MG TWICE A DAY PO
     Route: 048

REACTIONS (4)
  - FALL [None]
  - LOSS OF CONSCIOUSNESS [None]
  - SUBDURAL HAEMATOMA [None]
  - SYNCOPE [None]
